FAERS Safety Report 10089641 (Version 1)
Quarter: 2014Q2

REPORT INFORMATION
  Report Type: Spontaneous
  Country: US (occurrence: US)
  Receive Date: 20140421
  Receipt Date: 20140421
  Transmission Date: 20141212
  Serious: No
  Sender: FDA-Public Use
  Company Number: US-PFIZER INC-2014106945

PATIENT
  Age: 80 Year
  Sex: Female
  Weight: 68.03 kg

DRUGS (1)
  1. ADVIL [Suspect]
     Indication: ARTHRITIS
     Dosage: ONE TABLET, AS NEEDED

REACTIONS (1)
  - Insomnia [Unknown]
